FAERS Safety Report 25231173 (Version 1)
Quarter: 2025Q2

REPORT INFORMATION
  Report Type: Spontaneous
  Country: US (occurrence: None)
  Receive Date: 20250423
  Receipt Date: 20250423
  Transmission Date: 20250717
  Serious: Yes (Other)
  Sender: FDA-CTU
  Company Number: None

PATIENT
  Age: 38 Year
  Sex: Male
  Weight: 65.25 kg

DRUGS (3)
  1. FINASTERIDE\MINOXIDIL [Suspect]
     Active Substance: FINASTERIDE\MINOXIDIL
     Indication: Androgenetic alopecia
     Dosage: OTHER QUANTITY : 4 SPRAY(S);?FREQUENCY : DAILY;?
     Route: 061
     Dates: start: 20220310, end: 20220316
  2. Men^s daily vitamins [Concomitant]
  3. Minoxidil Foam (by itself [Concomitant]

REACTIONS (13)
  - Insomnia [None]
  - Headache [None]
  - Back pain [None]
  - Neck pain [None]
  - Arthralgia [None]
  - Muscular weakness [None]
  - Dizziness [None]
  - Brain fog [None]
  - Gingival pain [None]
  - Testicular pain [None]
  - Erectile dysfunction [None]
  - Genital hypoaesthesia [None]
  - Anhedonia [None]

NARRATIVE: CASE EVENT DATE: 20220312
